FAERS Safety Report 6819349-8 (Version None)
Quarter: 2010Q3

REPORT INFORMATION
  Report Type: 
  Country: None (occurrence: None)
  Receive Date: 20100707
  Receipt Date: 20090720
  Transmission Date: 20110219
  Serious: Yes (Other)
  Sender: FDA-Public Use
  Company Number: US-ASTRAZENECA-2007UW13995

PATIENT
  Age: 14584 Day
  Sex: Male

DRUGS (10)
  1. SEROQUEL [Suspect]
     Indication: SLEEP DISORDER
     Route: 048
     Dates: start: 20030401, end: 20031201
  2. SEROQUEL [Suspect]
     Indication: DEPRESSION
     Route: 048
     Dates: start: 20030401, end: 20031201
  3. SEROQUEL [Suspect]
     Route: 048
     Dates: start: 20031209
  4. SEROQUEL [Suspect]
     Route: 048
     Dates: start: 20031209
  5. LOPID [Concomitant]
     Indication: HYPERTRIGLYCERIDAEMIA
     Dates: start: 20070101
  6. ENALAPRIL MALEATE [Concomitant]
     Indication: HYPERTENSION
     Dates: start: 20070101
  7. HYDROCHLOROTHIAZIDE [Concomitant]
     Indication: HYPERTENSION
     Dates: start: 20070101
  8. NEURONTIN [Concomitant]
     Indication: PAIN IN EXTREMITY
     Dates: start: 20070301
  9. TRICOR [Concomitant]
     Indication: BLOOD TRIGLYCERIDES INCREASED
     Dates: start: 20070301
  10. ZOCOR [Concomitant]
     Dates: start: 20070309

REACTIONS (2)
  - DIABETIC NEUROPATHY [None]
  - TYPE 2 DIABETES MELLITUS [None]
